FAERS Safety Report 5634536-2 (Version None)
Quarter: 2008Q1

REPORT INFORMATION
  Report Type: 
  Country: None (occurrence: None)
  Receive Date: 20080222
  Receipt Date: 20080219
  Transmission Date: 20080703
  Serious: Yes (Death)
  Sender: FDA-Public Use
  Company Number: PHHO2007CA20996

PATIENT
  Age: 70 Year
  Sex: Male
  Weight: 54 kg

DRUGS (5)
  1. AMN107 [Suspect]
     Indication: CHRONIC MYELOID LEUKAEMIA
     Dosage: 400 MG, BID
     Route: 048
     Dates: start: 20070627, end: 20070725
  2. AMN107 [Suspect]
     Dosage: 400 MG, QD
     Route: 048
     Dates: start: 20070808, end: 20071219
  3. AMN107 [Suspect]
     Dosage: NO TREATMENT
     Dates: start: 20070726, end: 20070807
  4. LORAZEPAM [Concomitant]
     Indication: DEPRESSION
  5. GLYBURIDE [Concomitant]
     Indication: BLOOD GLUCOSE INCREASED

REACTIONS (2)
  - BLOOD BILIRUBIN INCREASED [None]
  - CORONARY ARTERY DISEASE [None]
